FAERS Safety Report 23178819 (Version 4)
Quarter: 2023Q4

REPORT INFORMATION
  Report Type: Report from Study
  Country: US (occurrence: US)
  Receive Date: 20231113
  Receipt Date: 20231207
  Transmission Date: 20240109
  Serious: Yes (Other)
  Sender: FDA-Public Use
  Company Number: US-ALXN-A202311601AA

PATIENT
  Sex: Female

DRUGS (2)
  1. ULTOMIRIS [Suspect]
     Active Substance: RAVULIZUMAB-CWVZ
     Indication: Myasthenia gravis
     Dosage: UNK, 8 WEEKLY
     Route: 042
     Dates: end: 20231030
  2. TOBRAMYCIN SULFATE [Suspect]
     Active Substance: TOBRAMYCIN SULFATE
     Indication: Product used for unknown indication
     Dosage: UNK
     Route: 065

REACTIONS (11)
  - Sinusitis bacterial [Recovered/Resolved]
  - Condition aggravated [Not Recovered/Not Resolved]
  - Myasthenia gravis [Unknown]
  - Pseudomonas infection [Recovered/Resolved]
  - Photophobia [Unknown]
  - Anxiety [Unknown]
  - Astigmatism [Unknown]
  - Myalgia [Unknown]
  - Fatigue [Unknown]
  - Drug hypersensitivity [Recovered/Resolved]
  - Device issue [Recovered/Resolved]
